FAERS Safety Report 22199466 (Version 1)
Quarter: 2023Q2

REPORT INFORMATION
  Report Type: Spontaneous
  Country: US (occurrence: US)
  Receive Date: 20230412
  Receipt Date: 20230412
  Transmission Date: 20230722
  Serious: No
  Sender: FDA-Public Use
  Company Number: US-JNJFOC-20230413798

PATIENT
  Sex: Female

DRUGS (1)
  1. TECLISTAMAB [Suspect]
     Active Substance: TECLISTAMAB
     Indication: Product used for unknown indication
     Route: 058

REACTIONS (4)
  - Rash [Recovered/Resolved with Sequelae]
  - Pyrexia [Recovered/Resolved]
  - Fluid retention [Recovered/Resolved]
  - Skin induration [Unknown]
